FAERS Safety Report 4724953-7 (Version None)
Quarter: 2005Q3

REPORT INFORMATION
  Report Type: 
  Country: None (occurrence: None)
  Receive Date: 20050726
  Receipt Date: 20050712
  Transmission Date: 20060218
  Serious: Yes (Hospitalization)
  Sender: FDA-Public Use
  Company Number: FI-ROCHE-410838

PATIENT
  Age: 68 Year
  Sex: Female

DRUGS (3)
  1. ROACCUTAN [Suspect]
     Indication: ROSACEA
     Route: 048
     Dates: start: 20050315
  2. ROACCUTAN [Suspect]
     Route: 048
     Dates: start: 20050315, end: 20050426
  3. ACTIVELLE [Concomitant]
     Indication: HORMONE REPLACEMENT THERAPY
     Route: 048

REACTIONS (8)
  - BALANCE DISORDER [None]
  - BLOOD CHOLESTEROL INCREASED [None]
  - BLOOD GLUCOSE INCREASED [None]
  - DEAFNESS UNILATERAL [None]
  - HEPATIC ENZYME INCREASED [None]
  - LOW DENSITY LIPOPROTEIN INCREASED [None]
  - NYSTAGMUS [None]
  - VERTIGO [None]
